FAERS Safety Report 16057187 (Version 1)
Quarter: 2019Q1

REPORT INFORMATION
  Report Type: Spontaneous
  Country: US (occurrence: US)
  Receive Date: 20190311
  Receipt Date: 20190311
  Transmission Date: 20190418
  Serious: No
  Sender: FDA-Public Use
  Company Number: US-BAYER-2019-049390

PATIENT
  Age: 90 Year
  Sex: Female
  Weight: 57 kg

DRUGS (6)
  1. VITAMIN B COMPLEX [Concomitant]
     Active Substance: CYANOCOBALAMIN\DEXPANTHENOL\NIACINAMIDE\PYRIDOXINE HYDROCHLORIDE\RIBOFLAVIN 5^-PHOSPHATE SODIUM\THIAMINE HYDROCHLORIDE\VITAMIN B COMPLEX
     Dosage: UNK
  2. AMD 070 [Concomitant]
  3. COQ10 [UBIDECARENONE] [Concomitant]
     Active Substance: UBIDECARENONE
  4. MIRALAX [Suspect]
     Active Substance: POLYETHYLENE GLYCOL 3350
     Indication: GASTROINTESTINAL DISORDER
     Dosage: UNK (1 CAP TO 4-6 OZ OF WATER DOSE)
     Route: 048
  5. CYANOCOBALAMIN. [Concomitant]
     Active Substance: CYANOCOBALAMIN
     Dosage: UNK
  6. VITAMIN D [Concomitant]
     Active Substance: CHOLECALCIFEROL
     Dosage: UNK

REACTIONS (4)
  - Flatulence [Unknown]
  - Drug ineffective [Unknown]
  - Adverse drug reaction [Unknown]
  - Abdominal distension [Unknown]
